FAERS Safety Report 8507380-6 (Version None)
Quarter: 2012Q3

REPORT INFORMATION
  Report Type: 
  Country: None (occurrence: None)
  Receive Date: 20120712
  Receipt Date: 20120709
  Transmission Date: 20120928
  Serious: Yes (Other)
  Sender: FDA-Public Use
  Company Number: US-ROCHE-1084635

PATIENT
  Sex: Female

DRUGS (3)
  1. BONIVA [Suspect]
     Indication: OSTEOPOROSIS
     Dates: start: 20100901, end: 20101101
  2. FOSAMAX [Suspect]
     Indication: OSTEOPOROSIS
     Dates: start: 20120101, end: 20120301
  3. ACTONEL [Suspect]
     Indication: OSTEOPOROSIS
     Dates: start: 20100401, end: 20100501

REACTIONS (1)
  - FEMUR FRACTURE [None]
